FAERS Safety Report 5939134-9 (Version None)
Quarter: 2008Q4

REPORT INFORMATION
  Report Type: 
  Country: None (occurrence: None)
  Receive Date: 20081103
  Receipt Date: 20081030
  Transmission Date: 20090506
  Serious: Yes (Hospitalization)
  Sender: FDA-Public Use
  Company Number: US-BRISTOL-MYERS SQUIBB COMPANY-14389597

PATIENT
  Age: 53 Year
  Sex: Male
  Weight: 74 kg

DRUGS (3)
  1. ERBITUX [Suspect]
     Indication: HEAD AND NECK CANCER
     Dosage: THERAPY STARTED ON 30-SEP-2008 W/ 400 MG/M2 LOADING DOSE.
     Route: 042
     Dates: start: 20081021, end: 20081021
  2. CISPLATIN [Suspect]
     Indication: HEAD AND NECK CANCER
     Dosage: START DATE 30-SEP-2008; GIVEN ON DAYS 1 + 22.
     Route: 042
     Dates: start: 20081021, end: 20081021
  3. RADIATION THERAPY [Suspect]
     Indication: HEAD AND NECK CANCER
     Dosage: 1 DF=4600 CGY. FIRST TREATMENT; 29-OCT2008 NO. OF FRACTIONS=25 NO. OF ELASPED DAYS=29
     Dates: start: 20080930, end: 20080930

REACTIONS (6)
  - ABDOMINAL PAIN [None]
  - BLOOD CREATININE INCREASED [None]
  - CONSTIPATION [None]
  - DEHYDRATION [None]
  - NAUSEA [None]
  - VOMITING [None]
